FAERS Safety Report 14298478 (Version 2)
Quarter: 2018Q1

REPORT INFORMATION
  Report Type: Report from Study
  Country: US (occurrence: US)
  Receive Date: 20171218
  Receipt Date: 20180125
  Transmission Date: 20180509
  Serious: Yes (Hospitalization)
  Sender: FDA-Public Use
  Company Number: US-ACTELION-A-US2017-162656

PATIENT
  Age: 59 Year
  Sex: Female

DRUGS (12)
  1. SPIRONOLACTONE. [Concomitant]
     Active Substance: SPIRONOLACTONE
  2. FERROUS SULFATE. [Concomitant]
     Active Substance: FERROUS SULFATE
  3. DOCQLACE [Concomitant]
     Active Substance: DOCUSATE SODIUM
  4. SENNA [Concomitant]
     Active Substance: SENNA LEAF\SENNOSIDES\SENNOSIDES A AND B
  5. XARELTO [Concomitant]
     Active Substance: RIVAROXABAN
  6. SILDENAFIL. [Concomitant]
     Active Substance: SILDENAFIL
  7. PANTOPRAZOLE [Concomitant]
     Active Substance: PANTOPRAZOLE
  8. AMIODARONE [Concomitant]
     Active Substance: AMIODARONE
  9. POTASSIUM CHLORIDE. [Concomitant]
     Active Substance: POTASSIUM CHLORIDE
  10. OPSUMIT [Suspect]
     Active Substance: MACITENTAN
     Indication: PULMONARY ARTERIAL HYPERTENSION
     Dosage: 10 MG, QD
     Route: 048
     Dates: start: 20161011
  11. LOSARTAN POTASSIUM. [Concomitant]
     Active Substance: LOSARTAN POTASSIUM
  12. DOCQLAX [Concomitant]
     Active Substance: DOCUSATE SODIUM\SENNOSIDES

REACTIONS (6)
  - Pulmonary hypertension [Recovering/Resolving]
  - Dyspnoea [Recovering/Resolving]
  - Drug dose omission [Unknown]
  - Memory impairment [Unknown]
  - Palpitations [Recovering/Resolving]
  - Atrial fibrillation [Recovering/Resolving]

NARRATIVE: CASE EVENT DATE: 20170831
